FAERS Safety Report 11706152 (Version 1)
Quarter: 2015Q4

REPORT INFORMATION
  Report Type: Spontaneous
  Country: GB (occurrence: GB)
  Receive Date: 20151106
  Receipt Date: 20151106
  Transmission Date: 20160304
  Serious: Yes (Disabling, Other)
  Sender: FDA-Public Use
  Company Number: GB-TEVA-605001ACC

PATIENT
  Age: 47 Year
  Sex: Male
  Weight: 88.9 kg

DRUGS (6)
  1. ATORVASTATIN [Suspect]
     Active Substance: ATORVASTATIN
     Route: 048
     Dates: start: 20141111, end: 20150930
  2. BISOPROLOL [Concomitant]
     Active Substance: BISOPROLOL
     Dosage: STOPPED
  3. CITALOPRAM [Concomitant]
     Active Substance: CITALOPRAM HYDROBROMIDE
  4. ASPIRIN. [Concomitant]
     Active Substance: ASPIRIN
  5. CLOPIDOGREL [Concomitant]
     Active Substance: CLOPIDOGREL BISULFATE
  6. LANSOPRAZOL [Concomitant]
     Active Substance: LANSOPRAZOLE

REACTIONS (6)
  - Bradyphrenia [Recovered/Resolved]
  - Disturbance in attention [Recovered/Resolved]
  - Confusional state [Recovered/Resolved]
  - Memory impairment [Recovered/Resolved]
  - Amnesia [Recovered/Resolved]
  - Dementia Alzheimer^s type [Recovered/Resolved]

NARRATIVE: CASE EVENT DATE: 20150206
